FAERS Safety Report 6076272-7 (Version None)
Quarter: 2009Q1

REPORT INFORMATION
  Report Type: 
  Country: None (occurrence: None)
  Receive Date: 20090209
  Receipt Date: 20090128
  Transmission Date: 20090719
  Serious: Yes (Hospitalization)
  Sender: FDA-Public Use
  Company Number: 230081K09GRC

PATIENT
  Sex: Female

DRUGS (1)
  1. REBIF [Suspect]

REACTIONS (4)
  - BACK PAIN [None]
  - DIZZINESS [None]
  - HAEMATOCRIT DECREASED [None]
  - VOMITING [None]
